FAERS Safety Report 4532969-9 (Version None)
Quarter: 2004Q4

REPORT INFORMATION
  Report Type: 
  Country: None (occurrence: None)
  Receive Date: 20041210
  Receipt Date: 20040903
  Transmission Date: 20050328
  Serious: No
  Sender: FDA-Public Use
  Company Number: 2004-00464

PATIENT
  Age: 58 Year
  Sex: Male
  Weight: 89 kg

DRUGS (5)
  1. VELCADE [Suspect]
     Indication: MULTIPLE MYELOMA
     Dosage: 2.70 MG, IV BOLUS
     Route: 040
  2. COUMADIN [Concomitant]
  3. PREVACID [Concomitant]
  4. KLONOPIN [Concomitant]
  5. TYLENOL [Concomitant]

REACTIONS (2)
  - TESTICULAR PAIN [None]
  - TESTICULAR SWELLING [None]
